FAERS Safety Report 9502082 (Version 1)
Quarter: 2013Q3

REPORT INFORMATION
  Report Type: Spontaneous
  Country: US (occurrence: US)
  Receive Date: 20130905
  Receipt Date: 20130905
  Transmission Date: 20140515
  Serious: Yes (Other)
  Sender: FDA-Public Use
  Company Number: US-RB-057960-13

PATIENT
  Sex: Female

DRUGS (2)
  1. SUBOXONE FILM [Suspect]
     Indication: PRODUCT USED FOR UNKNOWN INDICATION
     Dosage: SUBOXONE FILM
     Route: 065
  2. BUPRENORPHINE UNSPECIFIED [Suspect]
     Indication: PRODUCT USED FOR UNKNOWN INDICATION
     Route: 065

REACTIONS (4)
  - Coagulopathy [Unknown]
  - Nausea [Unknown]
  - Vomiting [Unknown]
  - Pain [Unknown]
